FAERS Safety Report 12188724 (Version 3)
Quarter: 2016Q2

REPORT INFORMATION
  Report Type: Spontaneous
  Country: JP (occurrence: JP)
  Receive Date: 20160317
  Receipt Date: 20160502
  Transmission Date: 20160815
  Serious: Yes (Other)
  Sender: FDA-Public Use
  Company Number: JP-JNJFOC-20160315411

PATIENT
  Age: 85 Year
  Sex: Male
  Weight: 66 kg

DRUGS (8)
  1. XARELTO [Suspect]
     Active Substance: RIVAROXABAN
     Indication: THROMBOSIS PROPHYLAXIS
     Route: 048
     Dates: start: 20141125, end: 20160225
  2. XARELTO [Suspect]
     Active Substance: RIVAROXABAN
     Indication: CEREBROVASCULAR ACCIDENT PROPHYLAXIS
     Route: 048
     Dates: start: 20141125, end: 20160225
  3. BISOPROLOL FUMARATE. [Concomitant]
     Active Substance: BISOPROLOL FUMARATE
     Route: 048
     Dates: start: 20150612
  4. EPADEL [Concomitant]
     Active Substance: ICOSAPENT
     Route: 048
  5. LUPRAC [Concomitant]
     Active Substance: TORSEMIDE
     Route: 048
  6. PLAVIX [Concomitant]
     Active Substance: CLOPIDOGREL BISULFATE
     Route: 048
     Dates: start: 20150213
  7. XARELTO [Suspect]
     Active Substance: RIVAROXABAN
     Indication: ATRIAL FIBRILLATION
     Route: 048
     Dates: start: 20141125, end: 20160225
  8. ATORVASTATIN CALCIUM. [Concomitant]
     Active Substance: ATORVASTATIN CALCIUM
     Route: 048
     Dates: start: 20140121

REACTIONS (1)
  - Organising pneumonia [Unknown]

NARRATIVE: CASE EVENT DATE: 201511
